FAERS Safety Report 23747012 (Version 1)
Quarter: 2024Q2

REPORT INFORMATION
  Report Type: Spontaneous
  Country: US (occurrence: None)
  Receive Date: 20240415
  Receipt Date: 20240415
  Transmission Date: 20240716
  Serious: No
  Sender: FDA-Public Use
  Company Number: None

PATIENT
  Age: 47 Year
  Sex: Female
  Weight: 64.35 kg

DRUGS (8)
  1. KENALOG [Suspect]
     Active Substance: TRIAMCINOLONE ACETONIDE
     Indication: Joint dislocation
     Dosage: 1 INJECTION DAILY INTRAMUSCULAR?
     Route: 030
     Dates: start: 20231218, end: 20231218
  2. LIDOCAINE [Suspect]
     Active Substance: LIDOCAINE
  3. BEUPENORPHINE [Concomitant]
  4. BUPROPION [Concomitant]
     Active Substance: BUPROPION
  5. BUSPIRONE [Concomitant]
     Active Substance: BUSPIRONE HYDROCHLORIDE
  6. RINVOQ [Concomitant]
     Active Substance: UPADACITINIB
  7. IBUPROFEN [Concomitant]
     Active Substance: IBUPROFEN
  8. TYLENOL [Concomitant]
     Active Substance: ACETAMINOPHEN

REACTIONS (4)
  - Injection site bruising [None]
  - Skin indentation [None]
  - Arthralgia [None]
  - Atrophy [None]

NARRATIVE: CASE EVENT DATE: 20231218
